FAERS Safety Report 18109390 (Version 6)
Quarter: 2024Q2

REPORT INFORMATION
  Report Type: Report from Study
  Country: FR (occurrence: FR)
  Receive Date: 20200804
  Receipt Date: 20240411
  Transmission Date: 20240715
  Serious: Yes (Hospitalization, Other)
  Sender: FDA-Public Use
  Company Number: FR-PFIZER INC-2020279825

PATIENT
  Age: 78 Year
  Sex: Female
  Weight: 66 kg

DRUGS (6)
  1. LETROZOLE [Suspect]
     Active Substance: LETROZOLE
     Indication: Breast cancer
     Dosage: 2.5 MG, DAILY
     Route: 065
     Dates: start: 20200619
  2. IBRANCE [Suspect]
     Active Substance: PALBOCICLIB
     Indication: Breast cancer
     Dosage: 125 MG, CYCLIC (DAILY DURING 21 DAYS THEN OFF DURING 7 DAYS)
     Route: 065
     Dates: start: 20200619, end: 20200717
  3. IBRANCE [Suspect]
     Active Substance: PALBOCICLIB
     Dosage: 100 MILLIGRAM, CYCLE (DAILY DURING 21 DAYS THEN OFF DURING 7 DAYS)
     Route: 065
     Dates: start: 20200724
  4. ATACAND [Concomitant]
     Active Substance: CANDESARTAN CILEXETIL
     Indication: Hypertension
     Dosage: UNK
     Route: 048
     Dates: start: 201406
  5. Previscan [Concomitant]
     Indication: Thrombosis prophylaxis
     Dosage: UNK
     Route: 048
     Dates: start: 201412
  6. Loxen [Concomitant]
     Indication: Hypertension
     Dosage: UNK
     Route: 048
     Dates: start: 201406

REACTIONS (3)
  - Febrile neutropenia [Recovered/Resolved]
  - Neutropenia [Recovered/Resolved]
  - Rash [Recovered/Resolved]

NARRATIVE: CASE EVENT DATE: 20200716
